FAERS Safety Report 23862304 (Version 1)
Quarter: 2024Q2

REPORT INFORMATION
  Report Type: Spontaneous
  Country: US (occurrence: US)
  Receive Date: 20240516
  Receipt Date: 20240516
  Transmission Date: 20240715
  Serious: No
  Sender: FDA-Public Use
  Company Number: US-PFIZER INC-PV202400063751

PATIENT
  Age: 22 Year
  Sex: Female

DRUGS (1)
  1. XELJANZ [Suspect]
     Active Substance: TOFACITINIB CITRATE
     Indication: Rheumatoid arthritis
     Dosage: 5 MG, AS NEEDED
     Route: 048
     Dates: start: 20240310

REACTIONS (4)
  - Malaise [Unknown]
  - Condition aggravated [Unknown]
  - Intentional product misuse [Unknown]
  - Product dose omission in error [Unknown]
